FAERS Safety Report 7412151-8 (Version None)
Quarter: 2011Q2

REPORT INFORMATION
  Report Type: 
  Country: None (occurrence: None)
  Receive Date: 20110413
  Receipt Date: 20110409
  Transmission Date: 20111010
  Serious: Yes (Hospitalization)
  Sender: FDA-Public Use
  Company Number: US-PFIZER INC-2011009234

PATIENT
  Sex: Male
  Weight: 69 kg

DRUGS (9)
  1. PF-04856884 [Suspect]
     Indication: LUNG NEOPLASM MALIGNANT
     Dosage: 1058 MG, CYCLIC: WEEKLY
     Route: 042
     Dates: start: 20101221
  2. OXYCONTIN [Concomitant]
     Indication: PAIN
     Dosage: 40 MG, EVERY 12 HOURS
     Route: 048
     Dates: start: 20100914
  3. CIPROFLOXACIN [Concomitant]
     Indication: INFECTION
     Dosage: 500 MG, 2X/DAY
     Route: 048
     Dates: start: 20110106
  4. COLACE [Concomitant]
     Indication: CONSTIPATION PROPHYLAXIS
     Dosage: 100 MG, 2X/DAY
     Route: 048
     Dates: start: 20100913
  5. OXYCODONE [Concomitant]
     Indication: PAIN
     Dosage: 5 MG, AS NEEDED
     Route: 048
     Dates: start: 20100913
  6. PROMETHAZINE [Concomitant]
     Indication: NAUSEA
     Dosage: 25 MG, AS NEEDED
     Route: 048
     Dates: start: 20101019
  7. BENADRYL [Concomitant]
     Indication: SINUS DISORDER
     Dosage: 25 MG, AS NEEDED
     Route: 048
     Dates: start: 20100901
  8. SUNITINIB MALATE [Suspect]
     Indication: LUNG NEOPLASM MALIGNANT
     Dosage: 50 MG, 1X/DAY, 4/2 SCHEDULE
     Route: 048
     Dates: start: 20101221, end: 20110107
  9. MIRALAX [Concomitant]
     Indication: CONSTIPATION PROPHYLAXIS
     Dosage: 1 PACK, AS NEEDED
     Route: 048
     Dates: start: 20100901

REACTIONS (1)
  - UPPER RESPIRATORY TRACT INFECTION [None]
